FAERS Safety Report 12747126 (Version 1)
Quarter: 2016Q3

REPORT INFORMATION
  Report Type: Report from Study
  Country: CO (occurrence: CO)
  Receive Date: 20160915
  Receipt Date: 20160915
  Transmission Date: 20161109
  Serious: Yes (Hospitalization)
  Sender: FDA-Public Use
  Company Number: CO-JNJFOC-20160913665

PATIENT
  Age: 38 Year
  Sex: Male
  Weight: 60 kg

DRUGS (1)
  1. RISPERDAL CONSTA [Suspect]
     Active Substance: RISPERIDONE
     Indication: SCHIZOPHRENIA
     Route: 030
     Dates: start: 20150502

REACTIONS (3)
  - Disorientation [Recovering/Resolving]
  - Aggression [Recovering/Resolving]
  - Incoherent [Recovering/Resolving]

NARRATIVE: CASE EVENT DATE: 20160822
